FAERS Safety Report 24750965 (Version 1)
Quarter: 2024Q4

REPORT INFORMATION
  Report Type: Spontaneous
  Country: US (occurrence: US)
  Receive Date: 20241219
  Receipt Date: 20241219
  Transmission Date: 20250115
  Serious: Yes (Hospitalization, Other)
  Sender: NOVO NORDISK
  Company Number: US-NOVOPROD-1334886

PATIENT
  Age: 75 Year
  Sex: Male

DRUGS (3)
  1. NPH INSULIN [Suspect]
     Active Substance: INSULIN BEEF
     Indication: Hypoglycaemia
     Dosage: 46 IU, BID
  2. SEMAGLUTIDE [Suspect]
     Active Substance: SEMAGLUTIDE
     Indication: Type 2 diabetes mellitus
     Dosage: 2 MG, QW
     Route: 058
  3. EMPAGLIFLOZIN [Concomitant]
     Active Substance: EMPAGLIFLOZIN
     Indication: Hypoglycaemia
     Dosage: 25 MG, QD

REACTIONS (5)
  - Hypoglycaemia [Recovered/Resolved]
  - Altered state of consciousness [Unknown]
  - Seizure [Unknown]
  - Chronic kidney disease [Unknown]
  - Hyperglycaemia [Unknown]
